FAERS Safety Report 11929782 (Version 1)
Quarter: 2016Q1

REPORT INFORMATION
  Report Type: Spontaneous
  Country: AE (occurrence: None)
  Receive Date: 20160119
  Receipt Date: 20160119
  Transmission Date: 20160526
  Serious: Yes (Disabling)
  Sender: FDA-Public Use
  Company Number: None

PATIENT
  Age: 46 Year
  Sex: Male
  Weight: 74.84 kg

DRUGS (5)
  1. KENALOG ORABASE (TRIAMCINOLONE ACETONIDE 0.1% DENTAL PASTE) [Concomitant]
  2. OMEGA 3 [Concomitant]
     Active Substance: OMEGA-3 FATTY ACIDS
  3. GNC MEGA MEN MULTIVITAMIN [Concomitant]
  4. LEVOFLOXACIN 750 MG DR. REDDY^S [Suspect]
     Active Substance: LEVOFLOXACIN
     Indication: PYREXIA
     Route: 048
     Dates: start: 20130412, end: 20130419
  5. VITAMIN D [Concomitant]
     Active Substance: CHOLECALCIFEROL

REACTIONS (12)
  - Tendon pain [None]
  - Plantar fasciitis [None]
  - Gait disturbance [None]
  - Genital hypoaesthesia [None]
  - Neuropathy peripheral [None]
  - Paraesthesia [None]
  - Penis disorder [None]
  - Hypoaesthesia [None]
  - Drug interaction [None]
  - Burning sensation [None]
  - Unevaluable event [None]
  - Quality of life decreased [None]

NARRATIVE: CASE EVENT DATE: 20130412
